FAERS Safety Report 10715952 (Version 1)
Quarter: 2015Q1

REPORT INFORMATION
  Report Type: Spontaneous
  Country: US (occurrence: None)
  Receive Date: 20150109
  Receipt Date: 20150109
  Transmission Date: 20150721
  Serious: Yes (Hospitalization)
  Sender: FDA-Public Use
  Company Number: 2014PROUSA03965

PATIENT
  Sex: Male
  Weight: 81.6 kg

DRUGS (17)
  1. NEURONTIN [Concomitant]
     Active Substance: GABAPENTIN
  2. FLOMAX [Concomitant]
     Active Substance: TAMSULOSIN HYDROCHLORIDE
  3. FERROUS SULFATE [Concomitant]
     Active Substance: FERROUS SULFATE\FERROUS SULFATE, DRIED
  4. PROVENGE [Suspect]
     Active Substance: SIPULEUCEL-T
     Indication: PROSTATE CANCER METASTATIC
  5. CINNAMON. [Concomitant]
     Active Substance: CINNAMON
  6. MULTIVITAMIN (VITAMINS NOS) [Concomitant]
     Active Substance: VITAMINS
  7. VITAMIN C [Concomitant]
     Active Substance: ASCORBIC ACID
  8. PRILOSEC (OMEPRAZOLE) [Concomitant]
     Active Substance: OMEPRAZOLE MAGNESIUM
  9. OS-CAL (CALCIUM CARBONATE) [Concomitant]
  10. LOVENOX [Concomitant]
     Active Substance: ENOXAPARIN SODIUM
  11. SYNTHROID [Concomitant]
     Active Substance: LEVOTHYROXINE SODIUM
  12. KLONOPIN [Concomitant]
     Active Substance: CLONAZEPAM
  13. RESVERATROL [Concomitant]
     Active Substance: RESVERATROL
  14. NIZORAL [Concomitant]
     Active Substance: KETOCONAZOLE
  15. VITAMIN D3 [Concomitant]
     Active Substance: CHOLECALCIFEROL
  16. FLAXSEED [Concomitant]
     Active Substance: FLAX SEED
  17. CIPROFLOXACIN (CIPROFLOXACIN HYDROCHLORIDE) [Concomitant]

REACTIONS (2)
  - Pyrexia [None]
  - Urinary tract infection [None]

NARRATIVE: CASE EVENT DATE: 20140815
